FAERS Safety Report 9152867 (Version 4)
Quarter: 2014Q3

REPORT INFORMATION
  Report Type: Report from Study
  Country: NL (occurrence: NL)
  Receive Date: 20130309
  Receipt Date: 20140908
  Transmission Date: 20150326
  Serious: Yes (Other)
  Sender: FDA-Public Use
  Company Number: NL-US-EMD SERONO, INC.-7198078

PATIENT
  Age: 18 Year
  Sex: Female
  Weight: 79 kg

DRUGS (2)
  1. PARACETAMOL [Concomitant]
     Active Substance: ACETAMINOPHEN
     Indication: PROPHYLAXIS
  2. REBIF [Suspect]
     Active Substance: INTERFERON BETA-1A
     Indication: MULTIPLE SCLEROSIS
     Route: 058
     Dates: start: 20121121, end: 20140827

REACTIONS (7)
  - Asthenia [Recovered/Resolved]
  - Panophthalmitis [Recovered/Resolved]
  - Injection site pain [Not Recovered/Not Resolved]
  - Nausea [Recovered/Resolved]
  - Injection site reaction [Recovered/Resolved]
  - Injection site bruising [Not Recovered/Not Resolved]
  - Influenza like illness [Recovered/Resolved]

NARRATIVE: CASE EVENT DATE: 20121219
